FAERS Safety Report 23035801 (Version 3)
Quarter: 2023Q4

REPORT INFORMATION
  Report Type: Report from Study
  Country: US (occurrence: US)
  Receive Date: 20231006
  Receipt Date: 20231103
  Transmission Date: 20240109
  Serious: No
  Sender: FDA-Public Use
  Company Number: US-JAZZ PHARMACEUTICALS-2023-US-006292

PATIENT
  Sex: Female

DRUGS (12)
  1. XYWAV [Suspect]
     Active Substance: CALCIUM OXYBATE\MAGNESIUM OXYBATE\POTASSIUM OXYBATE\SODIUM OXYBATE
     Indication: Narcolepsy
     Dosage: UNK
     Route: 048
  2. XYWAV [Suspect]
     Active Substance: CALCIUM OXYBATE\MAGNESIUM OXYBATE\POTASSIUM OXYBATE\SODIUM OXYBATE
     Dosage: 2.25 GRAM, BID
  3. XYWAV [Suspect]
     Active Substance: CALCIUM OXYBATE\MAGNESIUM OXYBATE\POTASSIUM OXYBATE\SODIUM OXYBATE
     Dosage: 3 GRAM, BID
     Route: 048
  4. XYWAV [Suspect]
     Active Substance: CALCIUM OXYBATE\MAGNESIUM OXYBATE\POTASSIUM OXYBATE\SODIUM OXYBATE
     Dosage: 3.75 GRAM, BID
  5. XYWAV [Suspect]
     Active Substance: CALCIUM OXYBATE\MAGNESIUM OXYBATE\POTASSIUM OXYBATE\SODIUM OXYBATE
     Dosage: 3 GRAM, BID
     Route: 048
  6. OVIDREL [Concomitant]
     Active Substance: CHORIOGONADOTROPIN ALFA
     Indication: Product used for unknown indication
     Dosage: 250 MCG/0.5 ML SYRG
     Dates: start: 20230726
  7. LEUPROLIDE ACETATE [Concomitant]
     Active Substance: LEUPROLIDE ACETATE
     Indication: Product used for unknown indication
     Dosage: UNK
     Dates: start: 20230726
  8. GANIRELIX ACETATE [Concomitant]
     Active Substance: GANIRELIX ACETATE
     Indication: Product used for unknown indication
     Dosage: 250 MCG/0.5 ML
     Dates: start: 20230717
  9. MENOPUR [Concomitant]
     Active Substance: FOLLITROPIN\LUTEINIZING HORMONE
     Indication: Product used for unknown indication
     Dosage: 75 UNIT VIAL
  10. MENOPUR [Concomitant]
     Active Substance: FOLLITROPIN\LUTEINIZING HORMONE
     Dosage: 75 UNIT VIAL
  11. MENOPUR [Concomitant]
     Active Substance: FOLLITROPIN\LUTEINIZING HORMONE
     Dosage: 75 UNIT VIAL
  12. GONAL F RFF [Concomitant]
     Indication: Product used for unknown indication
     Dosage: 300 UNIT
     Dates: start: 20230712

REACTIONS (9)
  - Abdominal discomfort [Recovered/Resolved]
  - Dyspepsia [Unknown]
  - Fatigue [Unknown]
  - Somnolence [Unknown]
  - Anxiety [Unknown]
  - Panic attack [Unknown]
  - Decreased appetite [Unknown]
  - Nausea [Unknown]
  - COVID-19 [Unknown]
